FAERS Safety Report 14922239 (Version 4)
Quarter: 2018Q3

REPORT INFORMATION
  Report Type: Spontaneous
  Country: FR (occurrence: FR)
  Receive Date: 20180522
  Receipt Date: 20180731
  Transmission Date: 20181010
  Serious: Yes (Hospitalization)
  Sender: FDA-Public Use
  Company Number: FR-TEVA-2018-FR-895534

PATIENT
  Age: 62 Year
  Sex: Female

DRUGS (14)
  1. LOVENOX [Concomitant]
     Active Substance: ENOXAPARIN SODIUM
     Route: 065
  2. OXYNORMORO [Concomitant]
     Active Substance: OXYCODONE HYDROCHLORIDE
     Route: 065
  3. CIPROFLOXACINE ARROW GENERIQUES 500 MG, COMPRIM? PELLICUL? [Suspect]
     Active Substance: CIPROFLOXACIN HYDROCHLORIDE
     Indication: DEVICE RELATED INFECTION
     Route: 048
     Dates: start: 20170529, end: 20170606
  4. ACUPAN [Concomitant]
     Active Substance: NEFOPAM HYDROCHLORIDE
     Route: 065
  5. EXACYL [Concomitant]
     Active Substance: TRANEXAMIC ACID
     Route: 065
  6. AMOXICILLINE [Suspect]
     Active Substance: AMOXICILLIN
     Indication: DEVICE RELATED INFECTION
     Route: 065
  7. PERINDOPRIL [Concomitant]
     Active Substance: PERINDOPRIL
     Route: 065
  8. CEFTAZIDIME MYLAN [Suspect]
     Active Substance: CEFTAZIDIME
     Indication: DEVICE RELATED INFECTION
     Route: 048
     Dates: start: 20170526, end: 20170603
  9. OXYCODONE [Concomitant]
     Active Substance: OXYCODONE
     Route: 065
  10. PANTOPRAZOLE MYLAN 20 MG, COMPRIM? GASTRO?R?SISTANT [Suspect]
     Active Substance: PANTOPRAZOLE SODIUM
     Indication: ANTACID THERAPY
     Dosage: 20 MILLIGRAM DAILY;
     Route: 048
     Dates: start: 20170524, end: 20170608
  11. FLUCONAZOLE ARROW 200 MG, G?LULE [Suspect]
     Active Substance: FLUCONAZOLE
     Indication: DEVICE RELATED INFECTION
     Route: 048
     Dates: start: 20170603, end: 20170608
  12. DOLIPRANE [Concomitant]
     Active Substance: ACETAMINOPHEN
     Route: 065
  13. MEROPENEM ANHYDRE [Concomitant]
     Active Substance: MEROPENEM
     Route: 065
  14. TAZOCILLINE [Concomitant]
     Active Substance: PIPERACILLIN SODIUM\TAZOBACTAM SODIUM
     Route: 065

REACTIONS (2)
  - Skin reaction [Unknown]
  - Acute generalised exanthematous pustulosis [Recovered/Resolved]

NARRATIVE: CASE EVENT DATE: 20170603
